FAERS Safety Report 10651289 (Version 2)
Quarter: 2015Q1

REPORT INFORMATION
  Report Type: Spontaneous
  Country: BE (occurrence: BE)
  Receive Date: 20141215
  Receipt Date: 20150320
  Transmission Date: 20150720
  Serious: Yes (Hospitalization, Other)
  Sender: FDA-Public Use
  Company Number: BE-JNJFOC-20141204802

PATIENT
  Sex: Female

DRUGS (20)
  1. NOBITEN [Concomitant]
     Route: 065
     Dates: start: 201305
  2. ALDACTONE [Concomitant]
     Active Substance: SPIRONOLACTONE
     Route: 065
     Dates: start: 200405
  3. MEDROL [Suspect]
     Active Substance: METHYLPREDNISOLONE
     Indication: PEMPHIGOID
     Route: 048
     Dates: start: 201302
  4. MEDROL [Suspect]
     Active Substance: METHYLPREDNISOLONE
     Indication: PEMPHIGOID
     Route: 048
     Dates: end: 20150106
  5. MEDROL [Suspect]
     Active Substance: METHYLPREDNISOLONE
     Indication: PEMPHIGOID
     Route: 048
  6. MEDROL [Suspect]
     Active Substance: METHYLPREDNISOLONE
     Indication: PRURIGO
     Route: 048
  7. GAMBARAN [Suspect]
     Active Substance: NABUMETONE
     Indication: PRODUCT USED FOR UNKNOWN INDICATION
     Route: 065
  8. HALCION [Concomitant]
     Active Substance: TRIAZOLAM
     Route: 065
     Dates: start: 201303
  9. MEDROL [Suspect]
     Active Substance: METHYLPREDNISOLONE
     Indication: PEMPHIGOID
     Route: 048
     Dates: end: 20150106
  10. MEDROL [Suspect]
     Active Substance: METHYLPREDNISOLONE
     Indication: PRURIGO
     Route: 048
     Dates: end: 20150106
  11. ASAFLOW [Concomitant]
     Active Substance: ASPIRIN
     Route: 065
     Dates: start: 200405
  12. XARELTO [Suspect]
     Active Substance: RIVAROXABAN
     Indication: PRODUCT USED FOR UNKNOWN INDICATION
     Route: 048
  13. COVERSYL [Concomitant]
     Active Substance: PERINDOPRIL
     Route: 065
     Dates: start: 200405
  14. MEDROL [Suspect]
     Active Substance: METHYLPREDNISOLONE
     Indication: PRURIGO
     Route: 048
     Dates: start: 201302
  15. MEDROL [Suspect]
     Active Substance: METHYLPREDNISOLONE
     Indication: PRURIGO
     Route: 048
  16. MEDROL [Suspect]
     Active Substance: METHYLPREDNISOLONE
     Indication: PEMPHIGOID
     Route: 048
     Dates: start: 201302
  17. MEDROL [Suspect]
     Active Substance: METHYLPREDNISOLONE
     Indication: PEMPHIGOID
     Route: 048
  18. ZANTAC [Concomitant]
     Active Substance: RANITIDINE HYDROCHLORIDE
     Route: 065
     Dates: start: 200405
  19. MEDROL [Suspect]
     Active Substance: METHYLPREDNISOLONE
     Indication: PEMPHIGOID
     Route: 048
  20. MEDROL [Suspect]
     Active Substance: METHYLPREDNISOLONE
     Indication: PEMPHIGOID
     Route: 048

REACTIONS (16)
  - Depressed mood [Unknown]
  - Post herpetic neuralgia [Unknown]
  - Oedema [Unknown]
  - Skin discolouration [Unknown]
  - Blood glucose increased [Unknown]
  - Skin wrinkling [Unknown]
  - Herpes zoster [Unknown]
  - Type 2 diabetes mellitus [Unknown]
  - Skin atrophy [Unknown]
  - Blister [Unknown]
  - Urticaria [Unknown]
  - Drug ineffective [Unknown]
  - Nervousness [Unknown]
  - Cataract [Unknown]
  - Dyspnoea [Unknown]
  - Thrombosis [Unknown]
